FAERS Safety Report 8509850-3 (Version None)
Quarter: 2012Q3

REPORT INFORMATION
  Report Type: 
  Country: None (occurrence: None)
  Receive Date: 20120713
  Receipt Date: 20120703
  Transmission Date: 20120928
  Serious: No
  Sender: FDA-Public Use
  Company Number: US-ASTRAZENECA-2012SE45260

PATIENT
  Age: 61 Year
  Sex: Female
  Weight: 97.5 kg

DRUGS (2)
  1. NEXIUM [Suspect]
     Route: 048
  2. OMEPRAZOLE [Concomitant]

REACTIONS (2)
  - OFF LABEL USE [None]
  - HEADACHE [None]
